FAERS Safety Report 9069037 (Version 1)
Quarter: 2013Q1

REPORT INFORMATION
  Report Type: Spontaneous
  Country: US (occurrence: None)
  Receive Date: 20130213
  Receipt Date: 20130213
  Transmission Date: 20140127
  Serious: Yes (Hospitalization)
  Sender: FDA-Public Use
  Company Number: None

PATIENT
  Sex: Female
  Weight: 76.2 kg

DRUGS (2)
  1. CARBOPLATIN [Suspect]
     Dates: end: 20130131
  2. PACLITAXEL (TAXOL) [Suspect]
     Dosage: 50MG/M2 IV OVER 1 HR ON DAYS 1,8,15,22,29 AND 36
     Dates: end: 20130131

REACTIONS (7)
  - Nausea [None]
  - Weight decreased [None]
  - Hypotension [None]
  - Dehydration [None]
  - Pallor [None]
  - Peripheral coldness [None]
  - Performance status decreased [None]
